FAERS Safety Report 18300947 (Version 1)
Quarter: 2020Q3

REPORT INFORMATION
  Report Type: Spontaneous
  Country: FI (occurrence: FI)
  Receive Date: 20200923
  Receipt Date: 20200923
  Transmission Date: 20201103
  Serious: Yes (Disabling)
  Sender: FDA-Public Use
  Company Number: FI-ABBVIE-20K-055-3572535-00

PATIENT
  Age: 28 Year
  Sex: Male

DRUGS (5)
  1. VENTOLINE DISKUS [Concomitant]
     Active Substance: ALBUTEROL SULFATE
     Indication: ASTHMA
     Dosage: ,,AS NECESSARY
     Route: 055
  2. KALCIPOS?D [Concomitant]
     Active Substance: CALCIUM CARBONATE\CHOLECALCIFEROL
     Indication: OSTEOPENIA
     Dosage: 2,DF,DAILY
     Route: 048
  3. LOSATRIX [Concomitant]
     Active Substance: LOSARTAN POTASSIUM
     Indication: HYPERTENSION
     Dosage: 100,MG,DAILY
     Route: 048
  4. FLIXOTIDE DISKUS [Concomitant]
     Active Substance: FLUTICASONE PROPIONATE
     Indication: ASTHMA
     Dosage: 500,UG,DAILY
     Route: 055
  5. HUMIRA [Suspect]
     Active Substance: ADALIMUMAB
     Indication: CROHN^S DISEASE
     Route: 058
     Dates: start: 2009, end: 2019

REACTIONS (12)
  - Middle insomnia [Recovered/Resolved with Sequelae]
  - Chest pain [Recovered/Resolved with Sequelae]
  - Muscle twitching [Recovered/Resolved with Sequelae]
  - Coordination abnormal [Recovered/Resolved with Sequelae]
  - Palpitations [Recovered/Resolved with Sequelae]
  - Presyncope [Recovered/Resolved with Sequelae]
  - Memory impairment [Recovered/Resolved with Sequelae]
  - Visual impairment [Recovered/Resolved with Sequelae]
  - Tremor [Recovered/Resolved with Sequelae]
  - Disturbance in attention [Recovered/Resolved with Sequelae]
  - Dizziness [Recovered/Resolved with Sequelae]
  - Altered visual depth perception [Recovered/Resolved with Sequelae]

NARRATIVE: CASE EVENT DATE: 20191028
